FAERS Safety Report 10458817 (Version 1)
Quarter: 2014Q3

REPORT INFORMATION
  Report Type: Spontaneous
  Country: US (occurrence: None)
  Receive Date: 20140916
  Receipt Date: 20140916
  Transmission Date: 20150326
  Serious: No
  Sender: FDA-Public Use
  Company Number: None

PATIENT

DRUGS (2)
  1. MIDAZOLAM HCL [Suspect]
     Active Substance: MIDAZOLAM HYDROCHLORIDE
     Dosage: 4 MG/2 ML ISECURE SYRINGE??
  2. ONDANSETRON HOSPIRA, INC. [Suspect]
     Active Substance: ONDANSETRON
     Dosage: 4 MG/2 ML ISECURE SYRINGE?

REACTIONS (4)
  - Medication error [None]
  - Wrong drug administered [None]
  - Drug dispensing error [None]
  - No adverse event [None]
